FAERS Safety Report 24785417 (Version 1)
Quarter: 2024Q4

REPORT INFORMATION
  Report Type: Spontaneous
  Country: GB (occurrence: GB)
  Receive Date: 20241228
  Receipt Date: 20241228
  Transmission Date: 20250114
  Serious: Yes (Death, Life-Threatening, Hospitalization, Other)
  Sender: AMGEN
  Company Number: GB-AMGEN-GBRSP2024253339

PATIENT
  Age: 69 Year
  Sex: Male

DRUGS (1)
  1. SOTORASIB [Suspect]
     Active Substance: SOTORASIB
     Indication: Product used for unknown indication
     Dosage: UNK
     Route: 065
     Dates: end: 20241014

REACTIONS (10)
  - Hypoxia [Unknown]
  - Pneumonitis [Fatal]
  - Cellulitis [Unknown]
  - Pleural effusion [Unknown]
  - Hyponatraemia [Unknown]
  - Pulmonary embolism [Unknown]
  - Inappropriate antidiuretic hormone secretion [Unknown]
  - Back pain [Unknown]
  - Oxygen consumption increased [Unknown]
  - Dyspnoea [Unknown]

NARRATIVE: CASE EVENT DATE: 20241013
